FAERS Safety Report 7219819-7 (Version None)
Quarter: 2011Q1

REPORT INFORMATION
  Report Type: 
  Country: None (occurrence: None)
  Receive Date: 20110111
  Receipt Date: 20101222
  Transmission Date: 20110831
  Serious: Yes (Hospitalization, Other)
  Sender: FDA-Public Use
  Company Number: US-ROCHE-715803

PATIENT
  Sex: Male

DRUGS (3)
  1. RIBAVIRIN [Suspect]
     Indication: HEPATITIS C
     Dosage: DIVIDED DOSE
     Route: 065
     Dates: start: 20100518, end: 20101201
  2. RIBAVIRIN [Suspect]
     Route: 065
     Dates: start: 20101221
  3. PEGINTERFERON ALFA-2A [Suspect]
     Indication: HEPATITIS C
     Dosage: FORM: PRE FILLED SYRINGE
     Route: 065
     Dates: start: 20100518

REACTIONS (8)
  - WHITE BLOOD CELL COUNT DECREASED [None]
  - DRY MOUTH [None]
  - WEIGHT DECREASED [None]
  - DIZZINESS [None]
  - HERNIA [None]
  - POOR QUALITY DRUG ADMINISTERED [None]
  - ANAEMIA [None]
  - URTICARIA [None]
